FAERS Safety Report 11768269 (Version 1)
Quarter: 2015Q4

REPORT INFORMATION
  Report Type: Spontaneous
  Country: IT (occurrence: IT)
  Receive Date: 20151123
  Receipt Date: 20151123
  Transmission Date: 20160304
  Serious: Yes (Hospitalization)
  Sender: FDA-Public Use
  Company Number: IT-SA-2015SA182358

PATIENT
  Age: 46 Year
  Sex: Female

DRUGS (2)
  1. FERLIXIT [Suspect]
     Active Substance: SODIUM FERRIC GLUCONATE COMPLEX
     Route: 048
     Dates: start: 20151102, end: 20151102
  2. FERLIXIT [Suspect]
     Active Substance: SODIUM FERRIC GLUCONATE COMPLEX
     Dosage: ORASOL ANDIV USE
     Route: 042
     Dates: start: 20151109, end: 20151109

REACTIONS (3)
  - Presyncope [Recovered/Resolved]
  - Laryngospasm [Recovered/Resolved]
  - Bronchospasm [Recovered/Resolved]

NARRATIVE: CASE EVENT DATE: 20151109
